FAERS Safety Report 11909254 (Version 1)
Quarter: 2016Q1

REPORT INFORMATION
  Report Type: Spontaneous
  Country: GB (occurrence: GB)
  Receive Date: 20160112
  Receipt Date: 20160112
  Transmission Date: 20160526
  Serious: Yes (Hospitalization, Other)
  Sender: FDA-Public Use
  Company Number: GB-ACCORD-036897

PATIENT
  Age: 64 Year
  Sex: Male
  Weight: 74 kg

DRUGS (1)
  1. CISPLATIN. [Suspect]
     Active Substance: CISPLATIN
     Indication: SQUAMOUS CELL CARCINOMA OF HEAD AND NECK
     Dosage: ^PLEASE CONFIRM ABSOLUTE DOSE WITH PHARMACIST^ (STRENGTH: 100 MG/M2MILLIGRAM (S)/SQ. METER)
     Route: 042
     Dates: start: 20151130, end: 20151130

REACTIONS (4)
  - Vomiting [Unknown]
  - Nausea [Unknown]
  - Renal salt-wasting syndrome [Recovered/Resolved]
  - Seizure [Recovered/Resolved]

NARRATIVE: CASE EVENT DATE: 20151206
